FAERS Safety Report 7438201-0 (Version None)
Quarter: 2011Q2

REPORT INFORMATION
  Report Type: 
  Country: None (occurrence: None)
  Receive Date: 20110426
  Receipt Date: 20110324
  Transmission Date: 20111010
  Serious: Yes (Hospitalization, Other)
  Sender: FDA-Public Use
  Company Number: US-BAYER-200943140NA

PATIENT
  Sex: Female
  Weight: 121.9 kg

DRUGS (8)
  1. HYDROCHLOROTHIAZIDE [Concomitant]
     Indication: BLOOD PRESSURE INCREASED
  2. GLIPIZIDE [Concomitant]
  3. METFORMIN [Concomitant]
  4. DIOVAN HCT [Concomitant]
  5. YAZ [Suspect]
     Indication: PRODUCT USED FOR UNKNOWN INDICATION
     Route: 048
  6. LABETALOL [Concomitant]
     Indication: BLOOD PRESSURE INCREASED
  7. CLONIDINE [Concomitant]
  8. MOBIC [Concomitant]

REACTIONS (7)
  - SWELLING [None]
  - DEEP VEIN THROMBOSIS [None]
  - DIZZINESS [None]
  - DRY SKIN [None]
  - PAIN [None]
  - PULMONARY EMBOLISM [None]
  - SKIN DISCOLOURATION [None]
